FAERS Safety Report 5250587-4 (Version None)
Quarter: 2007Q1

REPORT INFORMATION
  Report Type: 
  Country: None (occurrence: None)
  Receive Date: 20070228
  Receipt Date: 20060619
  Transmission Date: 20070707
  Serious: No
  Sender: FDA-Public Use
  Company Number: US-GLAXOSMITHKLINE-A0607593A

PATIENT
  Age: 67 Year
  Sex: Male

DRUGS (11)
  1. LAMICTAL [Suspect]
     Indication: DEPRESSION
     Dosage: 300MG PER DAY
     Route: 048
  2. LIPITOR [Concomitant]
  3. NEXIUM [Concomitant]
  4. GLIPIZIDE [Concomitant]
  5. WARFARIN SODIUM [Concomitant]
  6. CHLORPROMAZINE [Concomitant]
  7. LEXAPRO [Concomitant]
  8. LASIX [Concomitant]
  9. ALPRAZOLAM [Concomitant]
  10. AMBIEN [Concomitant]
  11. PROVIGIL [Concomitant]

REACTIONS (1)
  - RASH [None]
